FAERS Safety Report 9388054 (Version 1)
Quarter: 2013Q3

REPORT INFORMATION
  Report Type: Spontaneous
  Country: US (occurrence: None)
  Receive Date: 20130703
  Receipt Date: 20130703
  Transmission Date: 20140515
  Serious: Yes (Hospitalization)
  Sender: FDA-Public Use
  Company Number: A1028983A

PATIENT
  Age: 66 Year
  Sex: Female

DRUGS (6)
  1. CALCIUM CARBONATE [Suspect]
     Indication: ABDOMINAL DISCOMFORT
     Dates: start: 20130610
  2. THYROXINE SODIUM [Suspect]
  3. NEBIVOLOL HCL [Suspect]
  4. JANUMET [Suspect]
  5. ASPIRIN [Suspect]
  6. MULTIVITAMIN [Suspect]

REACTIONS (8)
  - Speech disorder [None]
  - Headache [None]
  - Electroencephalogram abnormal [None]
  - Nuclear magnetic resonance imaging abnormal [None]
  - Cerebral cyst [None]
  - Drug interaction [None]
  - Convulsion [None]
  - Loss of consciousness [None]
